FAERS Safety Report 6157539-0 (Version None)
Quarter: 2009Q2

REPORT INFORMATION
  Report Type: 
  Country: None (occurrence: None)
  Receive Date: 20090414
  Receipt Date: 20090331
  Transmission Date: 20091009
  Serious: Yes (Hospitalization)
  Sender: FDA-Public Use
  Company Number: SPV1-2009-00551

PATIENT
  Age: 47 Year
  Sex: Female

DRUGS (3)
  1. FOSRENOL [Suspect]
     Indication: HYPERPHOSPHATAEMIA
     Dosage: 1000 MG, EACHMEAL AND SNACK, ORAL
     Route: 048
  2. AMBIEN [Concomitant]
  3. TRAMADOL HCL [Concomitant]

REACTIONS (2)
  - DIALYSIS [None]
  - PANCREATITIS RELAPSING [None]
